FAERS Safety Report 21719269 (Version 2)
Quarter: 2022Q4

REPORT INFORMATION
  Report Type: Spontaneous
  Country: US (occurrence: US)
  Receive Date: 20221213
  Receipt Date: 20221216
  Transmission Date: 20230113
  Serious: No
  Sender: FDA-Public Use
  Company Number: US-UNITED THERAPEUTICS-UNT-2022-028967

PATIENT
  Sex: Female
  Weight: 61.224 kg

DRUGS (4)
  1. REMODULIN [Suspect]
     Active Substance: TREPROSTINIL
     Indication: Pulmonary arterial hypertension
     Dosage: UNK, CONTINUING
     Route: 058
     Dates: start: 20220808
  2. REMODULIN [Suspect]
     Active Substance: TREPROSTINIL
     Dosage: 0.010 ?G/KG (PHARMACY PRE-FILL WITH 2 ML/CASSETTE; AT PUMP RATE 16 MCL/HR), CONTINUING
     Route: 058
     Dates: start: 2022
  3. REMODULIN [Suspect]
     Active Substance: TREPROSTINIL
     Dosage: UNK, CONTINUING
     Route: 058
     Dates: start: 2022
  4. REMODULIN [Suspect]
     Active Substance: TREPROSTINIL
     Dosage: 0.010 ?G/KG (PRE-FILLED WITH 2.2 ML/CASSETTE; PUMP RATE OF 17 MCL/HOUR), CONTINUING
     Route: 058
     Dates: start: 2022

REACTIONS (5)
  - Infusion site pain [Unknown]
  - Fatigue [Unknown]
  - Abdominal pain upper [Unknown]
  - Dyspepsia [Unknown]
  - Swelling [Unknown]

NARRATIVE: CASE EVENT DATE: 20220101
